FAERS Safety Report 4951678-5 (Version None)
Quarter: 2006Q1

REPORT INFORMATION
  Report Type: 
  Country: None (occurrence: None)
  Receive Date: 20060322
  Receipt Date: 20060322
  Transmission Date: 20060701
  Serious: Yes (Other)
  Sender: FDA-Public Use
  Company Number: None

PATIENT
  Age: 31 Year
  Sex: Female
  Weight: 60.3284 kg

DRUGS (2)
  1. NUVARING [Suspect]
     Indication: CONTRACEPTION
     Dosage: ONE RING MONTHLY   MONTHLY   VAG
     Route: 067
     Dates: start: 20051027, end: 20060127
  2. NUVARING [Suspect]
     Indication: POLYCYSTIC OVARIES
     Dosage: ONE RING MONTHLY   MONTHLY   VAG
     Route: 067
     Dates: start: 20051027, end: 20060127

REACTIONS (2)
  - HAEMORRHAGE [None]
  - HEADACHE [None]
